FAERS Safety Report 4590181-1 (Version None)
Quarter: 2005Q1

REPORT INFORMATION
  Report Type: 
  Country: None (occurrence: None)
  Receive Date: 20050217
  Receipt Date: 20050207
  Transmission Date: 20050727
  Serious: Yes (Other)
  Sender: FDA-Public Use
  Company Number: 702318

PATIENT
  Age: 75 Year
  Sex: Female

DRUGS (1)
  1. AMEVIVE [Suspect]
     Indication: PSORIASIS
     Dosage: IM
     Route: 030
     Dates: start: 20040101, end: 20040101

REACTIONS (3)
  - ERYTHEMA [None]
  - STAPHYLOCOCCAL INFECTION [None]
  - SWELLING [None]
